FAERS Safety Report 6312234-X (Version None)
Quarter: 2009Q3

REPORT INFORMATION
  Report Type: 
  Country: None (occurrence: None)
  Receive Date: 20090813
  Receipt Date: 20090813
  Transmission Date: 20100115
  Serious: Yes (Hospitalization)
  Sender: FDA-Public Use
  Company Number: None

PATIENT
  Age: 79 Year
  Sex: Male
  Weight: 78 kg

DRUGS (2)
  1. LOPID [Suspect]
     Dosage: 600 MG BID PO UNKNOWN
     Route: 048
     Dates: start: 20090101, end: 20090801
  2. ZOCOR [Suspect]
     Dosage: 80 MG DAILY PO
     Route: 048

REACTIONS (8)
  - ABASIA [None]
  - DECREASED APPETITE [None]
  - DIARRHOEA [None]
  - METABOLIC ACIDOSIS [None]
  - RENAL FAILURE ACUTE [None]
  - RENAL TUBULAR NECROSIS [None]
  - RHABDOMYOLYSIS [None]
  - VASCULAR INSUFFICIENCY [None]
